FAERS Safety Report 4392061-3 (Version None)
Quarter: 2004Q3

REPORT INFORMATION
  Report Type: 
  Country: None (occurrence: None)
  Receive Date: 20040708
  Receipt Date: 20040624
  Transmission Date: 20050211
  Serious: Yes (Other)
  Sender: FDA-Public Use
  Company Number: PHBS2004US08483

PATIENT
  Sex: Male

DRUGS (1)
  1. CYCLOSPORINE [Suspect]
     Indication: RENAL TRANSPLANT
     Dosage: 10.7 MG/KG/D
     Route: 048

REACTIONS (6)
  - BLOOD CREATININE INCREASED [None]
  - GINGIVAL HYPERPLASIA [None]
  - GLOMERULONEPHRITIS FOCAL [None]
  - GRAFT LOSS [None]
  - HIRSUTISM [None]
  - NEPHROTIC SYNDROME [None]
